FAERS Safety Report 7456655-0 (Version None)
Quarter: 2011Q2

REPORT INFORMATION
  Report Type: 
  Country: None (occurrence: None)
  Receive Date: 20110503
  Receipt Date: 20110429
  Transmission Date: 20111010
  Serious: Yes (Other)
  Sender: FDA-Public Use
  Company Number: US-PFIZER INC-2011093158

PATIENT
  Sex: Female
  Weight: 83.9 kg

DRUGS (5)
  1. LYRICA [Suspect]
     Indication: NEUROPATHY PERIPHERAL
     Dosage: 300 MG, DAILY
     Route: 048
     Dates: start: 20080101
  2. KLONOPIN [Concomitant]
     Dosage: UNK
  3. LYRICA [Suspect]
     Indication: FIBROMYALGIA
  4. CYMBALTA [Concomitant]
     Dosage: UNK
  5. ZEBETA [Concomitant]
     Dosage: UNK

REACTIONS (1)
  - GASTROOESOPHAGEAL REFLUX DISEASE [None]
